FAERS Safety Report 9303483 (Version 2)
Quarter: 2013Q2

REPORT INFORMATION
  Report Type: Spontaneous
  Country: US (occurrence: None)
  Receive Date: 20130516
  Receipt Date: 20130530
  Transmission Date: 20140414
  Serious: Yes (Hospitalization, Other)
  Sender: FDA-Public Use
  Company Number: 13-F-US-00160

PATIENT
  Age: 52 Year
  Sex: Male
  Weight: 68.9 kg

DRUGS (7)
  1. FOLOTYN [Suspect]
     Indication: MYCOSIS FUNGOIDES
     Dosage: 15.4 MG/M**2 WEEKLY X 3 WEEKS THEN OFF 1 WEEK
     Route: 042
     Dates: start: 20130208
  2. OXYCOTIN (OXYCODONE HYDROCHLORIDE) [Concomitant]
  3. DOXEPIN (DOXEPINE) [Concomitant]
  4. FOLIC ACID (FOLIC ACID) [Concomitant]
  5. HYDROXYZINE (HYDROXYZINE) [Concomitant]
  6. CITALOPRAM (CITALOPRAM) [Concomitant]
  7. OMEPRAZOLE (OMEPRAZOLE) [Concomitant]

REACTIONS (7)
  - Haematemesis [None]
  - Haemoptysis [None]
  - Helicobacter infection [None]
  - Gastric ulcer [None]
  - Dry skin [None]
  - Nausea [None]
  - Gastrointestinal haemorrhage [None]
